FAERS Safety Report 15436441 (Version 2)
Quarter: 2018Q4

REPORT INFORMATION
  Report Type: Spontaneous
  Country: US (occurrence: US)
  Receive Date: 20180927
  Receipt Date: 20181102
  Transmission Date: 20190204
  Serious: Yes (Other)
  Sender: FDA-Public Use
  Company Number: US-BAYER-2018-179973

PATIENT
  Sex: Female

DRUGS (1)
  1. MIRENA [Suspect]
     Active Substance: LEVONORGESTREL
     Dosage: 20 MCG/24HR, CONT
     Route: 015
     Dates: start: 2014

REACTIONS (5)
  - Haemorrhage in pregnancy [Not Recovered/Not Resolved]
  - Abortion spontaneous [None]
  - Ectopic pregnancy with contraceptive device [None]
  - Drug ineffective [None]
  - Back pain [None]

NARRATIVE: CASE EVENT DATE: 2018
